FAERS Safety Report 8193578-6 (Version None)
Quarter: 2012Q1

REPORT INFORMATION
  Report Type: 
  Country: None (occurrence: None)
  Receive Date: 20120308
  Receipt Date: 20110926
  Transmission Date: 20120608
  Serious: Yes (Other)
  Sender: FDA-Public Use
  Company Number: US-ROCHE-1045855

PATIENT
  Sex: Male
  Weight: 63.6 kg

DRUGS (2)
  1. XELODA [Suspect]
     Dosage: QPM
  2. XELODA [Suspect]
     Indication: COLON CANCER
     Dosage: FREQUENCY : QAM
     Dates: start: 20110601

REACTIONS (8)
  - NAUSEA [None]
  - BACK PAIN [None]
  - FATIGUE [None]
  - CONSTIPATION [None]
  - WEIGHT DECREASED [None]
  - CHEST PAIN [None]
  - DECREASED APPETITE [None]
  - CHOKING SENSATION [None]
